FAERS Safety Report 19467639 (Version 1)
Quarter: 2021Q2

REPORT INFORMATION
  Report Type: Spontaneous
  Country: US (occurrence: US)
  Receive Date: 20210628
  Receipt Date: 20210628
  Transmission Date: 20210717
  Serious: Yes (Death, Life-Threatening, Disabling, Other)
  Sender: FDA-Public Use
  Company Number: None

PATIENT
  Age: 29 Year
  Sex: Male
  Weight: 98.1 kg

DRUGS (13)
  1. SEROQUEL [Suspect]
     Active Substance: QUETIAPINE FUMARATE
     Indication: INTENTIONAL PRODUCT USE ISSUE
     Dosage: ?          OTHER STRENGTH:UNKNOWN;QUANTITY:1 UNKNOWN;?
     Route: 061
     Dates: start: 20120202, end: 20120414
  2. RISPERDAL [Suspect]
     Active Substance: RISPERIDONE
  3. TESTOSTERONE BOOSTERS [Concomitant]
     Active Substance: TESTOSTERONE
  4. TUMERIC [Concomitant]
     Active Substance: HERBALS\TURMERIC
  5. NUTROPICS [Concomitant]
  6. INVEGA [Suspect]
     Active Substance: PALIPERIDONE
  7. MULTIVITAMINS [Concomitant]
     Active Substance: VITAMINS
  8. PROTEIN POWDER [Concomitant]
  9. GREENS [Concomitant]
  10. VITAMIN D [Concomitant]
     Active Substance: VITAMIN D NOS
  11. BCAAS [Concomitant]
  12. FAST CARBS [Concomitant]
  13. CALCIUM [Concomitant]
     Active Substance: CALCIUM

REACTIONS (3)
  - Hallucination, visual [None]
  - Dissociative disorder [None]
  - Dissociative amnesia [None]

NARRATIVE: CASE EVENT DATE: 19911102
